FAERS Safety Report 9414902 (Version 9)
Quarter: 2015Q1

REPORT INFORMATION
  Report Type: Report from Study
  Country: CA (occurrence: CA)
  Receive Date: 20130723
  Receipt Date: 20150210
  Transmission Date: 20150721
  Serious: Yes (Hospitalization)
  Sender: FDA-Public Use
  Company Number: CA-ROCHE-1244464

PATIENT
  Age: 69 Year
  Sex: Female
  Weight: 53.2 kg

DRUGS (6)
  1. TRASTUZUMAB EMTANSINE [Suspect]
     Active Substance: ADO-TRASTUZUMAB EMTANSINE
     Indication: HER-2 POSITIVE BREAST CANCER
     Dosage: DATE OF LAST DOSE PRIOR TO SAE: 20/JUN/2013
     Route: 042
     Dates: start: 20130620, end: 20130711
  2. FISH OIL [Concomitant]
     Active Substance: FISH OIL
     Route: 065
     Dates: start: 20130603, end: 20130607
  3. LEVETIRACETAM. [Concomitant]
     Active Substance: LEVETIRACETAM
     Route: 065
     Dates: start: 20130604
  4. TRASTUZUMAB EMTANSINE [Suspect]
     Active Substance: ADO-TRASTUZUMAB EMTANSINE
     Dosage: RE-STARTED
     Route: 042
     Dates: start: 20130801
  5. FRAGMIN [Concomitant]
     Active Substance: DALTEPARIN SODIUM
     Route: 065
     Dates: start: 201111, end: 20130625
  6. CLODRONATE [Concomitant]
     Active Substance: CLODRONATE DISODIUM
     Route: 065
     Dates: start: 2010

REACTIONS (1)
  - Haematuria [Recovered/Resolved]

NARRATIVE: CASE EVENT DATE: 20130701
